FAERS Safety Report 15346005 (Version 3)
Quarter: 2019Q1

REPORT INFORMATION
  Report Type: Spontaneous
  Country: US (occurrence: US)
  Receive Date: 20180904
  Receipt Date: 20190125
  Transmission Date: 20190417
  Serious: No
  Sender: FDA-Public Use
  Company Number: US-B.I. PHARMACEUTICALS,INC./RIDGEFIELD-2018-BI-043664

PATIENT
  Age: 72 Year
  Sex: Female

DRUGS (1)
  1. SPIRIVA [Suspect]
     Active Substance: TIOTROPIUM BROMIDE MONOHYDRATE
     Indication: CHRONIC OBSTRUCTIVE PULMONARY DISEASE
     Dosage: STRENGTH: 18 MCG; FORMULATION: CAPSULE? ADMINISTRATION CORRECT? NO : DOSE NOT CHANGED
     Route: 055
     Dates: start: 2016

REACTIONS (4)
  - Vulvovaginal pain [Not Recovered/Not Resolved]
  - Product quality issue [Unknown]
  - Vaginal exfoliation [Not Recovered/Not Resolved]
  - Intentional overdose [Recovered/Resolved]

NARRATIVE: CASE EVENT DATE: 2018
